FAERS Safety Report 9812571 (Version 1)
Quarter: 2014Q1

REPORT INFORMATION
  Report Type: Spontaneous
  Country: CA (occurrence: CA)
  Receive Date: 20140113
  Receipt Date: 20140113
  Transmission Date: 20141002
  Serious: Yes (Other)
  Sender: FDA-Public Use
  Company Number: CA-AMGEN-CANSP2014001281

PATIENT
  Age: 31 Year
  Sex: Female

DRUGS (2)
  1. ENBREL [Suspect]
     Indication: ANKYLOSING SPONDYLITIS
     Dosage: 50 MG, UNK
     Route: 065
     Dates: start: 20130122, end: 20131015
  2. VOLTAREN                           /00372301/ [Concomitant]
     Dosage: UNK

REACTIONS (1)
  - Ovarian cancer [Not Recovered/Not Resolved]
